FAERS Safety Report 6432060 (Version 2)
Quarter: 2018Q3

REPORT INFORMATION
  Report Type: Spontaneous
  Country: GB (occurrence: GB)
  Receive Date: 20071001
  Receipt Date: 20180717
  Transmission Date: 20181010
  Serious: Yes (Other)
  Sender: FDA-Public Use
  Company Number: GB-BAUSCH-2007BL003453

PATIENT
  Age: 42 Year
  Sex: Male

DRUGS (4)
  1. DICLOFENAC [Suspect]
     Active Substance: DICLOFENAC
     Indication: PLEURITIC PAIN
     Route: 065
     Dates: start: 200306, end: 200306
  2. TOBRAMYCIN. [Suspect]
     Active Substance: TOBRAMYCIN
     Indication: ANTI-INFECTIVE THERAPY
     Route: 042
     Dates: start: 200306, end: 200306
  3. COTRIMOXAZOL [Concomitant]
     Active Substance: SULFAMETHOXAZOLE\TRIMETHOPRIM
     Indication: ANTI-INFECTIVE THERAPY
     Route: 042
     Dates: start: 200306
  4. COLOMYCIN (COLISTIN) [Concomitant]
     Active Substance: COLISTIN SULFATE
     Indication: ANTI-INFECTIVE THERAPY
     Route: 042
     Dates: start: 200306

REACTIONS (1)
  - Acute kidney injury [Recovered/Resolved with Sequelae]

NARRATIVE: CASE EVENT DATE: 200306
